FAERS Safety Report 8604016-0 (Version None)
Quarter: 2012Q3

REPORT INFORMATION
  Report Type: 
  Country: None (occurrence: None)
  Receive Date: 20120820
  Receipt Date: 20120808
  Transmission Date: 20120928
  Serious: No
  Sender: FDA-Public Use
  Company Number: US-BIOGENIDEC-2012BI030741

PATIENT
  Sex: Female

DRUGS (3)
  1. TOPAMAX [Concomitant]
     Indication: CONVULSION PROPHYLAXIS
  2. TYSABRI [Suspect]
     Indication: MULTIPLE SCLEROSIS
     Route: 042
     Dates: start: 20110310, end: 20110728
  3. TYSABRI [Suspect]
     Route: 042
     Dates: start: 20111228

REACTIONS (2)
  - HEADACHE [None]
  - CONJUNCTIVITIS [None]
